FAERS Safety Report 7471937-4 (Version None)
Quarter: 2011Q2

REPORT INFORMATION
  Report Type: 
  Country: None (occurrence: None)
  Receive Date: 20110511
  Receipt Date: 20100803
  Transmission Date: 20111010
  Serious: No
  Sender: FDA-Public Use
  Company Number: A0873772A

PATIENT
  Sex: Female

DRUGS (2)
  1. HYDROCODONE SYRUP [Concomitant]
  2. TYKERB [Suspect]
     Indication: BREAST CANCER
     Dosage: 250MG TWICE PER DAY
     Route: 048
     Dates: start: 20100730

REACTIONS (4)
  - FATIGUE [None]
  - COUGH [None]
  - MUSCULAR WEAKNESS [None]
  - SOMNOLENCE [None]
